FAERS Safety Report 17846696 (Version 1)
Quarter: 2020Q2

REPORT INFORMATION
  Report Type: Spontaneous
  Country: FR (occurrence: FR)
  Receive Date: 20200601
  Receipt Date: 20200601
  Transmission Date: 20200714
  Serious: Yes (Death, Hospitalization, Other)
  Sender: FDA-Public Use
  Company Number: FR-VISTAPHARM, INC.-VER202005-001021

PATIENT
  Age: 72 Year
  Sex: Female

DRUGS (5)
  1. PALBOCICLIB [Suspect]
     Active Substance: PALBOCICLIB
     Indication: NEOPLASM PROGRESSION
     Dosage: 125 MG 4-WEEK CYCLES (3 WEEKS OF TREATMENT FOLLOWED BY 1 WEEK OFF)
     Route: 048
  2. EXEMESTANE. [Suspect]
     Active Substance: EXEMESTANE
     Indication: NEOPLASM PROGRESSION
     Dosage: 25 MG
  3. PREDNISOLONE. [Suspect]
     Active Substance: PREDNISOLONE
     Dosage: 20 MG
  4. PREDNISOLONE. [Suspect]
     Active Substance: PREDNISOLONE
     Indication: IMMUNODEFICIENCY
     Dosage: 40 MG FOR 5 DAYS
     Dates: start: 201905
  5. PALBOCICLIB [Suspect]
     Active Substance: PALBOCICLIB
     Dosage: 100 MG

REACTIONS (4)
  - Interstitial lung disease [Unknown]
  - Lymphopenia [Unknown]
  - Pyelonephritis [Unknown]
  - Pneumocystis jirovecii pneumonia [Fatal]
